FAERS Safety Report 6255631-3 (Version None)
Quarter: 2009Q3

REPORT INFORMATION
  Report Type: 
  Country: None (occurrence: None)
  Receive Date: 20090619
  Receipt Date: 20090610
  Transmission Date: 20100115
  Serious: Yes (Hospitalization)
  Sender: FDA-Public Use
  Company Number: 20090610CINRY1013

PATIENT
  Age: 27 Year
  Sex: Female

DRUGS (1)
  1. CINRYZE [Suspect]
     Indication: HEREDITARY ANGIOEDEMA
     Dosage: 1000 UNIT, 1 TIME DOSE), INTRAVENOUS
     Route: 042
     Dates: start: 20090609, end: 20090609

REACTIONS (6)
  - ERYTHEMA [None]
  - NAUSEA [None]
  - SWELLING FACE [None]
  - URINARY RETENTION [None]
  - URINARY TRACT INFECTION [None]
  - VOMITING [None]
